FAERS Safety Report 7937981-5 (Version None)
Quarter: 2011Q4

REPORT INFORMATION
  Report Type: 
  Country: None (occurrence: None)
  Receive Date: 20111123
  Receipt Date: 20111117
  Transmission Date: 20120403
  Serious: Yes (Hospitalization)
  Sender: FDA-Public Use
  Company Number: US-US-EMD SERONO, INC.-7089652

PATIENT
  Sex: Male

DRUGS (1)
  1. REBIF [Suspect]
     Indication: MULTIPLE SCLEROSIS
     Route: 058
     Dates: start: 20110819

REACTIONS (5)
  - DIZZINESS [None]
  - INJECTION SITE ERYTHEMA [None]
  - INJURY ASSOCIATED WITH DEVICE [None]
  - CEREBROVASCULAR ACCIDENT [None]
  - DEVICE BREAKAGE [None]
